FAERS Safety Report 4314407-4 (Version None)
Quarter: 2004Q1

REPORT INFORMATION
  Report Type: 
  Country: None (occurrence: None)
  Receive Date: 20040309
  Receipt Date: 20010314
  Transmission Date: 20041129
  Serious: Yes (Death, Hospitalization)
  Sender: FDA-Public Use
  Company Number: FR-GLAXOSMITHKLINE-B0247194A

PATIENT
  Age: 80 Year
  Sex: Male

DRUGS (3)
  1. AUGMENTIN [Suspect]
     Indication: BRONCHITIS
     Dosage: 3G PER DAY
     Route: 048
     Dates: start: 20010205, end: 20010216
  2. AUGMENTIN [Suspect]
     Indication: BRONCHITIS
     Dosage: 1G THREE TIMES PER DAY
     Route: 042
     Dates: start: 20010204, end: 20010204
  3. OFLOCET [Concomitant]
     Indication: BRONCHITIS
     Dosage: 200MG THREE TIMES PER DAY
     Dates: start: 20010216, end: 20010221

REACTIONS (4)
  - ABDOMINAL PAIN [None]
  - CEREBROVASCULAR ACCIDENT [None]
  - CLOSTRIDIUM COLITIS [None]
  - DIARRHOEA [None]
